FAERS Safety Report 26119175 (Version 1)
Quarter: 2025Q4

REPORT INFORMATION
  Report Type: Spontaneous
  Country: US (occurrence: US)
  Receive Date: 20251204
  Receipt Date: 20251204
  Transmission Date: 20260117
  Serious: No
  Sender: Kenvue
  Company Number: US-KENVUE-20251101819

PATIENT
  Sex: Female

DRUGS (17)
  1. TYLENOL [Suspect]
     Active Substance: ACETAMINOPHEN
     Indication: Catheter site pain
     Dosage: UNK
     Route: 065
  2. TYLENOL [Suspect]
     Active Substance: ACETAMINOPHEN
     Indication: Pain in extremity
  3. TYLENOL [Suspect]
     Active Substance: ACETAMINOPHEN
     Indication: Pain in jaw
  4. TYLENOL [Suspect]
     Active Substance: ACETAMINOPHEN
     Indication: Pain
  5. REMODULIN [Concomitant]
     Active Substance: TREPROSTINIL
     Indication: Pulmonary arterial hypertension
     Dosage: CONCENTRATION 1.0 MG/ML
  6. REMODULIN [Concomitant]
     Active Substance: TREPROSTINIL
     Dosage: 0.01667 ?G/KG
  7. REMODULIN [Concomitant]
     Active Substance: TREPROSTINIL
     Dosage: 0.02143 ?G/KG (5 MG/ML)
  8. REMODULIN [Concomitant]
     Active Substance: TREPROSTINIL
     Dosage: CONCENTRATION 2.5 MG/ML, CURRENT DOSE OF 0.012 ?G/KG
  9. REMODULIN [Concomitant]
     Active Substance: TREPROSTINIL
     Dosage: 0.025 ?G/KG (5 MG/ML)
  10. REMODULIN [Concomitant]
     Active Substance: TREPROSTINIL
     Dosage: 0.02738 ?G/KG (5 MG/ML)
  11. REMODULIN [Concomitant]
     Active Substance: TREPROSTINIL
     Dosage: 0.0381 ?G/KG (5 MG/ML)
  12. REMODULIN [Concomitant]
     Active Substance: TREPROSTINIL
     Dosage: 0.04048 ?G/KG (5 MG/ML)
  13. REMODULIN [Concomitant]
     Active Substance: TREPROSTINIL
     Dosage: UNK
  14. GABAPENTIN [Concomitant]
     Active Substance: GABAPENTIN
     Indication: Pain in extremity
     Route: 065
  15. TRIAMCINOLONE ACETONIDE [Concomitant]
     Active Substance: TRIAMCINOLONE ACETONIDE
     Indication: Catheter site pain
     Route: 065
  16. LIDOCAINE\PRILOCAINE [Concomitant]
     Active Substance: LIDOCAINE\PRILOCAINE
     Indication: Catheter site pain
     Route: 065
  17. LECITHIN\POLOXAMER 407 [Concomitant]
     Active Substance: LECITHIN\POLOXAMER 407
     Indication: Product used for unknown indication
     Route: 065

REACTIONS (1)
  - Therapeutic product effect incomplete [Unknown]

NARRATIVE: CASE EVENT DATE: 20250101
